FAERS Safety Report 9180745 (Version 2)
Quarter: 2013Q2

REPORT INFORMATION
  Report Type: Spontaneous
  Country: US (occurrence: US)
  Receive Date: 20130322
  Receipt Date: 20130522
  Transmission Date: 20140414
  Serious: Yes (Other)
  Sender: FDA-Public Use
  Company Number: US-JNJFOC-20130307713

PATIENT
  Age: 72 Year
  Sex: Male
  Weight: 80.74 kg

DRUGS (15)
  1. XARELTO [Suspect]
     Indication: CEREBROVASCULAR ACCIDENT PROPHYLAXIS
     Route: 048
     Dates: start: 20130107, end: 20130221
  2. XARELTO [Suspect]
     Indication: ATRIAL FIBRILLATION
     Route: 048
     Dates: start: 20130107, end: 20130221
  3. INDOMETHACIN [Suspect]
     Indication: GOUT
     Dosage: 25MG/TWICE DAILY AS??NEEDED/ORAL
     Route: 048
     Dates: start: 1998, end: 201302
  4. CELEBREX [Suspect]
     Indication: PAIN IN EXTREMITY
     Dosage: FOR 2 WEEKS
     Route: 048
     Dates: start: 20130227, end: 2013
  5. CELEBREX [Suspect]
     Indication: GOUTY ARTHRITIS
     Dosage: FOR 2 WEEKS
     Route: 048
     Dates: start: 20130227, end: 2013
  6. PROTONIX [Concomitant]
     Indication: CARDIAC DISORDER
     Dosage: 10 DAYS
     Route: 048
     Dates: start: 20130107, end: 201302
  7. ATENOLOL + CHLORTALIDONE [Concomitant]
     Indication: HYPERTENSION
     Dosage: 100, 125 TB FROM 20 YEARS
     Route: 048
     Dates: start: 1993
  8. AMLODIPINE BESYLATE [Concomitant]
     Indication: HEART RATE
     Route: 048
     Dates: start: 1993
  9. AMLODIPINE BESYLATE [Concomitant]
     Indication: BLOOD PRESSURE
     Route: 048
     Dates: start: 1993
  10. SIMVASTATIN [Concomitant]
     Indication: CARDIAC DISORDER
     Dosage: YEARS
     Route: 048
     Dates: start: 1993
  11. SIMVASTATIN [Concomitant]
     Indication: BLOOD CHOLESTEROL
     Dosage: YEARS
     Route: 048
     Dates: start: 1993
  12. AUGMENTIN [Concomitant]
     Indication: PNEUMONIA
     Dosage: 2 WEEKS
     Route: 048
     Dates: start: 20130108, end: 201302
  13. AUGMENTIN [Concomitant]
     Indication: HEART RATE
     Dosage: 2 WEEKS
     Route: 048
     Dates: start: 20130108, end: 201302
  14. CARDIZEM [Concomitant]
     Indication: HEART RATE
     Dosage: 2 WEEKS
     Route: 048
     Dates: start: 20130104, end: 201302
  15. LACTINEX [Concomitant]
     Indication: PNEUMONIA
     Dosage: FOR 10 DAYS
     Route: 065
     Dates: start: 20130107

REACTIONS (4)
  - Thrombosis [Unknown]
  - Blood triglycerides increased [Unknown]
  - Drug ineffective [Unknown]
  - Gouty arthritis [Recovering/Resolving]
